FAERS Safety Report 8909570 (Version 2)
Quarter: 2013Q1

REPORT INFORMATION
  Report Type: Report from Study
  Country: IE (occurrence: IE)
  Receive Date: 20121115
  Receipt Date: 20130129
  Transmission Date: 20140127
  Serious: Yes (Hospitalization)
  Sender: FDA-Public Use
  Company Number: IE-US-EMD SERONO, INC.-7173314

PATIENT
  Sex: Female

DRUGS (2)
  1. REBIF [Suspect]
     Indication: SECONDARY PROGRESSIVE MULTIPLE SCLEROSIS
     Route: 058
     Dates: start: 19990321, end: 20110114
  2. REBIF [Suspect]
     Route: 058
     Dates: start: 20110117, end: 201110

REACTIONS (3)
  - Carotid artery stenosis [Unknown]
  - Chest pain [Recovered/Resolved]
  - Drug dose omission [Unknown]
